FAERS Safety Report 13926995 (Version 1)
Quarter: 2017Q3

REPORT INFORMATION
  Report Type: Spontaneous
  Country: US (occurrence: US)
  Receive Date: 20170831
  Receipt Date: 20170831
  Transmission Date: 20171127
  Serious: No
  Sender: FDA-Public Use
  Company Number: US-FERRINGPH-2017FE00848

PATIENT
  Age: 73 Year
  Sex: Male
  Weight: 83.9 kg

DRUGS (3)
  1. PREPOPIK [Suspect]
     Active Substance: ANHYDROUS CITRIC ACID\MAGNESIUM OXIDE\SODIUM PICOSULFATE
     Indication: BOWEL PREPARATION
     Dosage: 2 SACHETS
     Route: 048
     Dates: start: 20170122, end: 20170122
  2. SYNTHROID [Concomitant]
     Active Substance: LEVOTHYROXINE SODIUM
     Indication: PRODUCT USED FOR UNKNOWN INDICATION
     Route: 065
  3. ATIVAN [Concomitant]
     Active Substance: LORAZEPAM
     Indication: PRODUCT USED FOR UNKNOWN INDICATION
     Dosage: UNK
     Route: 065
     Dates: start: 201702

REACTIONS (8)
  - Decreased appetite [Not Recovered/Not Resolved]
  - Weight decreased [Not Recovered/Not Resolved]
  - Pollakiuria [Recovered/Resolved]
  - Abdominal pain [Not Recovered/Not Resolved]
  - Thirst [Recovered/Resolved]
  - Abdominal pain upper [Not Recovered/Not Resolved]
  - Insomnia [Unknown]
  - Abdominal distension [Unknown]

NARRATIVE: CASE EVENT DATE: 201701
